FAERS Safety Report 23296366 (Version 1)
Quarter: 2023Q4

REPORT INFORMATION
  Report Type: Spontaneous
  Country: CN (occurrence: CN)
  Receive Date: 20231214
  Receipt Date: 20231214
  Transmission Date: 20240110
  Serious: Yes (Hospitalization)
  Sender: FDA-Public Use
  Company Number: CN-PFIZER INC-PV202300199945

PATIENT
  Age: 61 Year
  Sex: Female
  Weight: 78 kg

DRUGS (3)
  1. TIGECYCLINE [Suspect]
     Active Substance: TIGECYCLINE
     Indication: Intracranial infection
     Dosage: 100 MG, 1X/DAY
     Route: 041
     Dates: start: 20231122, end: 20231129
  2. TIGECYCLINE [Suspect]
     Active Substance: TIGECYCLINE
     Indication: Pneumonia
  3. AMIKACIN SULFATE [Concomitant]
     Active Substance: AMIKACIN SULFATE
     Indication: Intracranial infection
     Dosage: 0.6 G, 1X/DAY
     Route: 041
     Dates: start: 20231124, end: 20231129

REACTIONS (3)
  - Urticaria [Recovering/Resolving]
  - Rash macular [Recovering/Resolving]
  - Off label use [Unknown]

NARRATIVE: CASE EVENT DATE: 20231122
